FAERS Safety Report 11402078 (Version 1)
Quarter: 2015Q3

REPORT INFORMATION
  Report Type: Spontaneous
  Country: US (occurrence: US)
  Receive Date: 20150821
  Receipt Date: 20150821
  Transmission Date: 20151125
  Serious: No
  Sender: FDA-Public Use
  Company Number: US-ROCHE-1364500

PATIENT
  Sex: Male

DRUGS (3)
  1. SOVALDI [Suspect]
     Active Substance: SOFOSBUVIR
     Indication: HEPATITIS C
     Dosage: 12 WEEK COURSE
     Route: 065
     Dates: start: 20140303
  2. RIBAVIRIN. [Suspect]
     Active Substance: RIBAVIRIN
     Indication: HEPATITIS C
     Dosage: DIVDED DOSES 600/600.  12 WEEK COURSE.
     Route: 065
     Dates: start: 20140303
  3. PEGASYS [Suspect]
     Active Substance: PEGINTERFERON ALFA-2A
     Indication: HEPATITIS C
     Dosage: 12 WEEK COURSE
     Route: 058
     Dates: start: 20140303

REACTIONS (7)
  - Fatigue [Recovering/Resolving]
  - Abdominal distension [Unknown]
  - Injection site rash [Unknown]
  - Dyspnoea [Recovering/Resolving]
  - Pyrexia [Unknown]
  - Abdominal pain [Unknown]
  - Nausea [Recovered/Resolved]
